FAERS Safety Report 22627400 (Version 1)
Quarter: 2023Q2

REPORT INFORMATION
  Report Type: Spontaneous
  Country: US (occurrence: US)
  Receive Date: 20230622
  Receipt Date: 20230622
  Transmission Date: 20230721
  Serious: Yes (Other)
  Sender: FDA-Public Use
  Company Number: US-AMGEN-USASP2023102880

PATIENT
  Sex: Female

DRUGS (3)
  1. PROLIA [Suspect]
     Active Substance: DENOSUMAB
     Indication: Osteoporosis
     Dosage: 60 MILLIGRAM, Q6MO
     Route: 058
  2. COVID-19 vaccine [Concomitant]
     Dosage: UNK
  3. ZETIA [Concomitant]
     Active Substance: EZETIMIBE
     Dosage: UNK

REACTIONS (6)
  - Rheumatoid arthritis [Recovering/Resolving]
  - Respiratory syncytial virus infection [Recovering/Resolving]
  - Oral herpes [Recovering/Resolving]
  - Influenza [Recovering/Resolving]
  - Sinusitis [Recovering/Resolving]
  - Bronchitis [Recovering/Resolving]
